FAERS Safety Report 4680390-5 (Version None)
Quarter: 2005Q2

REPORT INFORMATION
  Report Type: 
  Country: None (occurrence: None)
  Receive Date: 20050601
  Receipt Date: 20050517
  Transmission Date: 20051028
  Serious: Yes (Life-Threatening, Other)
  Sender: FDA-Public Use
  Company Number: 8009684

PATIENT
  Sex: Female
  Weight: 55 kg

DRUGS (6)
  1. KEPPRA [Suspect]
     Indication: EPILEPSY
     Dosage: 500 MG 2/D PO
     Route: 048
     Dates: start: 20041206
  2. KEPPRA [Suspect]
     Indication: EPILEPSY
     Dosage: 1000 MG 2/D PO
     Route: 048
     Dates: end: 20050321
  3. TEGRETOL [Concomitant]
  4. LAMICTAL [Concomitant]
  5. AMOXICILLIN [Concomitant]
  6. ORAL CONTRACEPTIVE [Concomitant]

REACTIONS (7)
  - ASTHENIA [None]
  - BRONCHITIS [None]
  - FATIGUE [None]
  - INFECTION [None]
  - LEUKOPENIA [None]
  - NEUTROPENIA [None]
  - SINUSITIS [None]
